FAERS Safety Report 4360833-7 (Version None)
Quarter: 2004Q2

REPORT INFORMATION
  Report Type: 
  Country: None (occurrence: None)
  Receive Date: 20040519
  Receipt Date: 20040519
  Transmission Date: 20050107
  Serious: Yes (Other)
  Sender: FDA-Public Use
  Company Number: None

PATIENT
  Age: 24 Year
  Sex: Female
  Weight: 59.4 kg

DRUGS (1)
  1. PROHANCE [Suspect]
     Indication: NUCLEAR MAGNETIC RESONANCE IMAGING
     Dosage: 1.5 ML X 1

REACTIONS (4)
  - DYSPHONIA [None]
  - EYE SWELLING [None]
  - SNEEZING [None]
  - THROAT TIGHTNESS [None]
